FAERS Safety Report 25992813 (Version 2)
Quarter: 2025Q4

REPORT INFORMATION
  Report Type: Spontaneous
  Country: JP (occurrence: JP)
  Receive Date: 20251103
  Receipt Date: 20251111
  Transmission Date: 20260118
  Serious: Yes (Hospitalization)
  Sender: BRISTOL-MYERS SQUIBB COMPANY
  Company Number: JP-BRISTOL-MYERS SQUIBB COMPANY-2025-144084

PATIENT
  Age: 47 Year
  Sex: Female

DRUGS (4)
  1. YERVOY [Suspect]
     Active Substance: IPILIMUMAB
     Indication: Hepatocellular carcinoma
     Route: 041
     Dates: start: 20250917
  2. YERVOY [Suspect]
     Active Substance: IPILIMUMAB
     Dosage: THE SECOND DOSE WAS ADMINISTERED
     Route: 041
     Dates: start: 20251006
  3. OPDIVO [Suspect]
     Active Substance: NIVOLUMAB
     Indication: Hepatocellular carcinoma
     Route: 041
     Dates: start: 20250917
  4. OPDIVO [Suspect]
     Active Substance: NIVOLUMAB
     Dosage: THE SECOND DOSE WAS ADMINISTERED
     Route: 041
     Dates: start: 20251006

REACTIONS (2)
  - Rash [Recovered/Resolved]
  - COVID-19 [Recovered/Resolved]

NARRATIVE: CASE EVENT DATE: 20250924
